FAERS Safety Report 10189462 (Version 2)
Quarter: 2014Q2

REPORT INFORMATION
  Report Type: Spontaneous
  Country: JP (occurrence: JP)
  Receive Date: 20140522
  Receipt Date: 20140522
  Transmission Date: 20141212
  Serious: Yes (Other)
  Sender: FDA-Public Use
  Company Number: JP-PFIZER INC-2014116755

PATIENT
  Age: 80 Year
  Sex: Female
  Weight: 40.4 kg

DRUGS (4)
  1. JZOLOFT [Suspect]
     Indication: DEPRESSION
     Dosage: 25 MG, 1X/DAY
     Route: 048
     Dates: start: 20140422, end: 20140430
  2. JZOLOFT [Suspect]
     Indication: DECREASED APPETITE
  3. DOGMATYL [Concomitant]
     Indication: DECREASED APPETITE
     Dosage: 25 MG, UNK
     Dates: start: 20140331
  4. MYSLEE [Concomitant]
     Indication: INSOMNIA
     Dosage: 5 MG, 1X/DAY
     Route: 048

REACTIONS (6)
  - Hallucination [Recovered/Resolved]
  - Restlessness [Recovered/Resolved]
  - Insomnia [Unknown]
  - Fall [Unknown]
  - Logorrhoea [Unknown]
  - Agitation [Unknown]
